FAERS Safety Report 6088516-6 (Version None)
Quarter: 2009Q1

REPORT INFORMATION
  Report Type: 
  Country: None (occurrence: None)
  Receive Date: 20090220
  Receipt Date: 20090220
  Transmission Date: 20090719
  Serious: Yes (Other)
  Sender: FDA-Public Use
  Company Number: None

PATIENT
  Age: 4 Year
  Sex: Female
  Weight: 16.7831 kg

DRUGS (1)
  1. TAMIFLU [Suspect]
     Indication: INFLUENZA
     Dosage: 3/4 TSP TWICE DAILY PO
     Route: 048
     Dates: start: 20090212, end: 20090214

REACTIONS (6)
  - AGGRESSION [None]
  - COMMUNICATION DISORDER [None]
  - CRYING [None]
  - PANIC ATTACK [None]
  - POOR QUALITY SLEEP [None]
  - SCREAMING [None]
